FAERS Safety Report 5125749-7 (Version None)
Quarter: 2006Q3

REPORT INFORMATION
  Report Type: 
  Country: None (occurrence: None)
  Receive Date: 20060814
  Receipt Date: 20051215
  Transmission Date: 20061208
  Serious: No
  Sender: FDA-Public Use
  Company Number: K200501609

PATIENT
  Age: 61 Year
  Sex: Female

DRUGS (8)
  1. DELESTROGEN [Suspect]
     Indication: HORMONE REPLACEMENT THERAPY
  2. ESTRACE [Suspect]
     Indication: HORMONE REPLACEMENT THERAPY
  3. PROVERA [Suspect]
     Indication: HORMONE REPLACEMENT THERAPY
  4. PREMPRO [Suspect]
     Indication: HORMONE REPLACEMENT THERAPY
  5. PREMARIN [Suspect]
     Indication: HORMONE REPLACEMENT THERAPY
  6. DEPO-ESTRADIOL [Suspect]
     Indication: HORMONE REPLACEMENT THERAPY
  7. DEPO-TESTADIOL [Suspect]
     Indication: HORMONE REPLACEMENT THERAPY
  8. ESTRATEST [Suspect]
     Indication: HORMONE REPLACEMENT THERAPY

REACTIONS (1)
  - BREAST CANCER [None]
